FAERS Safety Report 5151894-6 (Version None)
Quarter: 2006Q4

REPORT INFORMATION
  Report Type: 
  Country: None (occurrence: None)
  Receive Date: 20061108
  Receipt Date: 20061031
  Transmission Date: 20070319
  Serious: Yes (Hospitalization)
  Sender: FDA-Public Use
  Company Number: HQWYE978231OCT06

PATIENT
  Age: 79 Year
  Sex: Male

DRUGS (5)
  1. CORDARONE [Suspect]
     Dosage: 200 MG ORAL
     Route: 048
     Dates: end: 20040501
  2. ZESTRIL [Concomitant]
  3. TANAKAN (GINKGO TREE LEAVES EXTRACT) [Concomitant]
  4. OMEPRAZOLE [Concomitant]
  5. DIGOXIN [Concomitant]

REACTIONS (4)
  - BRONCHITIS [None]
  - GENERAL PHYSICAL CONDITION ABNORMAL [None]
  - OBSTRUCTIVE AIRWAYS DISORDER [None]
  - PULMONARY FIBROSIS [None]
